FAERS Safety Report 21599996 (Version 3)
Quarter: 2022Q4

REPORT INFORMATION
  Report Type: Report from Study
  Country: IE (occurrence: IE)
  Receive Date: 20221116
  Receipt Date: 20221128
  Transmission Date: 20230113
  Serious: No
  Sender: FDA-Public Use
  Company Number: IE-BAXTER-2022BAX023899

PATIENT
  Age: 57 Year
  Sex: Male

DRUGS (10)
  1. SODIUM CHLORIDE [Suspect]
     Active Substance: SODIUM CHLORIDE
     Indication: Medication dilution
     Dosage: DAILY (DOSE NOT REPORTED)
     Route: 042
     Dates: start: 20221028
  2. SODIUM CHLORIDE [Suspect]
     Active Substance: SODIUM CHLORIDE
     Dosage: 230 ML, DAILY
     Route: 042
     Dates: start: 20221029, end: 20221030
  3. SODIUM CHLORIDE [Suspect]
     Active Substance: SODIUM CHLORIDE
     Dosage: 230 ML, DAILY
     Route: 042
     Dates: start: 20221031
  4. PIPERACILLIN SODIUM\TAZOBACTAM SODIUM [Suspect]
     Active Substance: PIPERACILLIN SODIUM\TAZOBACTAM SODIUM
     Indication: Diabetic foot
     Dosage: 13.5 G, DAILY
     Route: 042
     Dates: start: 20221028
  5. PIPERACILLIN SODIUM\TAZOBACTAM SODIUM [Suspect]
     Active Substance: PIPERACILLIN SODIUM\TAZOBACTAM SODIUM
     Indication: Osteomyelitis
     Dosage: 13.5 G, DAILY
     Route: 042
     Dates: start: 20221029, end: 20221030
  6. PIPERACILLIN SODIUM\TAZOBACTAM SODIUM [Suspect]
     Active Substance: PIPERACILLIN SODIUM\TAZOBACTAM SODIUM
     Dosage: 13.5 G, DAILY
     Route: 042
     Dates: start: 20221031
  7. CITRATE [Suspect]
     Active Substance: CITRIC ACID MONOHYDRATE
     Dosage: DAILY (DOSE NOT REPORTED)
     Route: 042
     Dates: start: 20221028
  8. CITRATE [Suspect]
     Active Substance: CITRIC ACID MONOHYDRATE
     Dosage: DAILY, (DOSE NOT REPORTED)
     Route: 042
     Dates: start: 20221029, end: 20221030
  9. CITRATE [Suspect]
     Active Substance: CITRIC ACID MONOHYDRATE
     Dosage: DAILY, (DOSE NOT REPORTED)
     Route: 042
     Dates: start: 20221031
  10. UNSPECIFIED INGREDIENT [Suspect]
     Active Substance: UNSPECIFIED INGREDIENT
     Route: 065

REACTIONS (6)
  - Nausea [Not Recovered/Not Resolved]
  - Diarrhoea [Not Recovered/Not Resolved]
  - Fatigue [Not Recovered/Not Resolved]
  - Vomiting [Not Recovered/Not Resolved]
  - Product dose omission issue [Unknown]
  - Device infusion issue [Unknown]

NARRATIVE: CASE EVENT DATE: 20221001
